FAERS Safety Report 9839893 (Version 3)
Quarter: 2014Q1

REPORT INFORMATION
  Report Type: Spontaneous
  Country: US (occurrence: US)
  Receive Date: 20140124
  Receipt Date: 20140130
  Transmission Date: 20141002
  Serious: Yes (Hospitalization)
  Sender: FDA-Public Use
  Company Number: US-BEH-2013036419

PATIENT
  Age: 63 Year
  Sex: Female
  Weight: 78 kg

DRUGS (34)
  1. HIZENTRA [Suspect]
     Indication: IMMUNODEFICIENCY COMMON VARIABLE
     Route: 058
  2. HIZENTRA [Suspect]
     Dosage: 4 GM 20 ML VIAL;2-5 SITES OVER 1-2 HOURS
     Route: 058
  3. HIZENTRA [Suspect]
     Dosage: 4 GM 20 ML VIAL
     Route: 058
  4. ACETAMINOPHEN [Concomitant]
  5. DIPHENHYDRAMINE [Concomitant]
  6. LIDOCAINE/PRILOCAINE [Concomitant]
  7. EPI-PEN [Concomitant]
  8. LMX [Concomitant]
  9. NITROSTAT [Concomitant]
  10. ALLOPURINOL [Concomitant]
  11. WARFARIN [Concomitant]
  12. VITAMIN D [Concomitant]
  13. FISH OIL [Concomitant]
  14. ALLER-TEC [Concomitant]
  15. SINGULAIR [Concomitant]
  16. NASONEX [Concomitant]
  17. GEMFIBROZIL [Concomitant]
  18. METFORMIN [Concomitant]
  19. LANSOPRAZOLE [Concomitant]
  20. LEVOTHYROXINE [Concomitant]
  21. LIOTHYRONINE [Concomitant]
  22. PERCOCET [Concomitant]
  23. MUCINEX [Concomitant]
  24. DYRENIUM [Concomitant]
  25. CELEBREX [Concomitant]
  26. TRIMETHOPRIM [Concomitant]
  27. CALCIUM WITH MAGNESIUM [Concomitant]
  28. IRON [Concomitant]
  29. FOLBEE [Concomitant]
  30. HYDROXYZINE [Concomitant]
  31. ZIAC [Concomitant]
  32. EPLERENONE [Concomitant]
  33. SULFAMETHOXAZOLE [Concomitant]
  34. FLECAINIDE ACETATE [Concomitant]

REACTIONS (6)
  - Cardiac ablation [Unknown]
  - Cardiac ablation [Unknown]
  - Rash [Recovered/Resolved]
  - Headache [Unknown]
  - Chills [Unknown]
  - Pyrexia [Unknown]
